FAERS Safety Report 23310570 (Version 1)
Quarter: 2023Q4

REPORT INFORMATION
  Report Type: Spontaneous
  Country: CA (occurrence: CA)
  Receive Date: 20231218
  Receipt Date: 20231218
  Transmission Date: 20240109
  Serious: Yes (Other)
  Sender: FDA-Public Use
  Company Number: CA-BIOMARINAP-CA-2023-154635

PATIENT

DRUGS (1)
  1. VIMIZIM [Suspect]
     Active Substance: ELOSULFASE ALFA
     Indication: Mucopolysaccharidosis IV
     Dosage: 35 MILLIGRAM, QW
     Route: 042
     Dates: start: 20210325

REACTIONS (6)
  - Platyspondylia [Unknown]
  - Stenosis [Unknown]
  - Aortic dilatation [Unknown]
  - Right ventricular dilatation [Unknown]
  - Joint dislocation [Unknown]
  - Urinary glycosaminoglycans increased [Unknown]

NARRATIVE: CASE EVENT DATE: 20221001
